FAERS Safety Report 22344024 (Version 3)
Quarter: 2024Q2

REPORT INFORMATION
  Report Type: Other
  Country: TH (occurrence: None)
  Receive Date: 20230519
  Receipt Date: 20240522
  Transmission Date: 20240716
  Serious: Yes (Hospitalization)
  Sender: FDA-Public Use
  Company Number: TH-ROCHE-3338033

PATIENT
  Age: 56 Year
  Sex: Female

DRUGS (3)
  1. MABTHERA [Suspect]
     Active Substance: RITUXIMAB
     Indication: Follicular lymphoma
     Route: 041
  2. MABTHERA [Suspect]
     Active Substance: RITUXIMAB
     Route: 041
  3. MABTHERA [Suspect]
     Active Substance: RITUXIMAB
     Route: 041

REACTIONS (15)
  - Abdominal pain upper [Unknown]
  - Constipation [Unknown]
  - Pyrexia [Unknown]
  - Thrombocytopenia [Unknown]
  - Leukopenia [Unknown]
  - Alopecia [Unknown]
  - Fatigue [Unknown]
  - Oral fungal infection [Unknown]
  - Gastrointestinal haemorrhage [Unknown]
  - Intestinal obstruction [Unknown]
  - Platelet count decreased [Unknown]
  - White blood cell count decreased [Unknown]
  - Gastrointestinal inflammation [Unknown]
  - Ill-defined disorder [Unknown]
  - Blood test abnormal [Unknown]

NARRATIVE: CASE EVENT DATE: 20230423
